FAERS Safety Report 22084939 (Version 5)
Quarter: 2025Q1

REPORT INFORMATION
  Report Type: Report from Study
  Country: US (occurrence: US)
  Receive Date: 20230310
  Receipt Date: 20250324
  Transmission Date: 20250408
  Serious: Yes (Hospitalization, Other)
  Sender: TAKEDA
  Company Number: US-TAKEDA-US201848234

PATIENT
  Age: 57 Year
  Sex: Female

DRUGS (3)
  1. HUMAN IMMUNOGLOBULIN G [Suspect]
     Active Substance: HUMAN IMMUNOGLOBULIN G
     Indication: Primary immunodeficiency syndrome
  2. CUVITRU [Suspect]
     Active Substance: HUMAN IMMUNOGLOBULIN G
     Indication: Primary immunodeficiency syndrome
  3. CUVITRU [Suspect]
     Active Substance: HUMAN IMMUNOGLOBULIN G
     Indication: Immunodeficiency common variable

REACTIONS (10)
  - COVID-19 [Recovered/Resolved]
  - Drug hypersensitivity [Unknown]
  - Arthropathy [Unknown]
  - Seasonal allergy [Unknown]
  - Muscle strain [Unknown]
  - Bronchitis [Not Recovered/Not Resolved]
  - Back injury [Unknown]
  - Gait disturbance [Unknown]
  - Arthritis infective [Unknown]
  - Cough [Unknown]

NARRATIVE: CASE EVENT DATE: 20250318
